FAERS Safety Report 19159854 (Version 3)
Quarter: 2022Q1

REPORT INFORMATION
  Report Type: Spontaneous
  Country: US (occurrence: US)
  Receive Date: 20210420
  Receipt Date: 20220217
  Transmission Date: 20220423
  Serious: No
  Sender: FDA-Public Use
  Company Number: US-GILEAD-2021-0525975

PATIENT
  Age: 33 Year
  Sex: Female

DRUGS (1)
  1. VIREAD [Suspect]
     Active Substance: TENOFOVIR DISOPROXIL FUMARATE
     Indication: HIV infection
     Dosage: UNK
     Route: 048
     Dates: start: 2010, end: 20160108

REACTIONS (3)
  - Protein total abnormal [Not Recovered/Not Resolved]
  - Protein total increased [Unknown]
  - Glomerular filtration rate increased [Unknown]
